FAERS Safety Report 15979519 (Version 2)
Quarter: 2019Q2

REPORT INFORMATION
  Report Type: Spontaneous
  Country: US (occurrence: US)
  Receive Date: 20190219
  Receipt Date: 20190412
  Transmission Date: 20190711
  Serious: No
  Sender: FDA-Public Use
  Company Number: US-PFIZER INC-2019074098

PATIENT
  Sex: Female

DRUGS (1)
  1. GLIPIZIDE XL [Suspect]
     Active Substance: GLIPIZIDE
     Dosage: UNK

REACTIONS (5)
  - Burning sensation [Unknown]
  - Blood glucose increased [Unknown]
  - Drug hypersensitivity [Unknown]
  - Rash [Unknown]
  - Erythema [Unknown]
